FAERS Safety Report 12859198 (Version 1)
Quarter: 2016Q4

REPORT INFORMATION
  Report Type: Spontaneous
  Country: US (occurrence: US)
  Receive Date: 20161018
  Receipt Date: 20161018
  Transmission Date: 20170207
  Serious: No
  Sender: FDA-Public Use
  Company Number: US-NOVOPROD-506233

PATIENT
  Sex: Female

DRUGS (1)
  1. TRESIBA [Suspect]
     Active Substance: INSULIN DEGLUDEC
     Indication: PRODUCT USED FOR UNKNOWN INDICATION
     Dosage: 30 U, QD (PRESCRIBED 46 U)
     Route: 058

REACTIONS (5)
  - Urine odour abnormal [Unknown]
  - Skin hypertrophy [Unknown]
  - Incorrect dose administered [Unknown]
  - Hyperkeratosis [Unknown]
  - Onychoclasis [Unknown]
